FAERS Safety Report 13463348 (Version 2)
Quarter: 2017Q4

REPORT INFORMATION
  Report Type: Spontaneous
  Country: CH (occurrence: CH)
  Receive Date: 20170420
  Receipt Date: 20171222
  Transmission Date: 20180320
  Serious: Yes (Hospitalization)
  Sender: FDA-Public Use
  Company Number: CH-ASTRAZENECA-2017SE38929

PATIENT
  Age: 76 Year
  Sex: Female

DRUGS (19)
  1. SEVREDOL [Interacting]
     Active Substance: MORPHINE
     Route: 048
     Dates: start: 20170324, end: 20170329
  2. NEXIUM [Suspect]
     Active Substance: ESOMEPRAZOLE MAGNESIUM
     Route: 048
     Dates: start: 20170325, end: 20170328
  3. SERESTA [Interacting]
     Active Substance: OXAZEPAM
     Route: 048
     Dates: start: 20170325, end: 20170329
  4. PLAVIX [Concomitant]
     Active Substance: CLOPIDOGREL BISULFATE
     Dates: start: 20170401
  5. LYRICA [Concomitant]
     Active Substance: PREGABALIN
  6. TRAMAL [Concomitant]
     Active Substance: TRAMADOL
     Dates: start: 20170331, end: 20170403
  7. DIOVAN [Concomitant]
     Active Substance: VALSARTAN
     Dates: start: 20170325, end: 20170327
  8. AMLODIPINE [Concomitant]
     Active Substance: AMLODIPINE BESYLATE
  9. TEGRETOL [Concomitant]
     Active Substance: CARBAMAZEPINE
  10. SPIRIVA [Concomitant]
     Active Substance: TIOTROPIUM BROMIDE MONOHYDRATE
  11. SEROPRAM (CITALOPRAM HYDROBROMIDE) [Concomitant]
     Active Substance: CITALOPRAM HYDROBROMIDE
  12. SYMBICORT [Concomitant]
     Active Substance: BUDESONIDE\FORMOTEROL FUMARATE DIHYDRATE
  13. ASPIRIN CARDIO [Concomitant]
     Active Substance: ASPIRIN
     Dates: start: 20170401
  14. BELOC ZOK [Concomitant]
     Active Substance: METOPROLOL SUCCINATE
  15. CLEXANE [Concomitant]
     Active Substance: ENOXAPARIN SODIUM
     Dates: start: 20170323
  16. SORTIS [Concomitant]
     Active Substance: ATORVASTATIN
  17. ENTUMINE [Interacting]
     Active Substance: CLOTHIAPINE
     Route: 048
  18. TRITTICO [Concomitant]
     Active Substance: TRAZODONE HYDROCHLORIDE
  19. TEMESTA [Concomitant]
     Active Substance: LORAZEPAM
     Dates: start: 20170331

REACTIONS (3)
  - Drug interaction [Unknown]
  - Liver injury [Recovered/Resolved]
  - Altered state of consciousness [Recovered/Resolved]

NARRATIVE: CASE EVENT DATE: 2017
